FAERS Safety Report 17710427 (Version 1)
Quarter: 2020Q2

REPORT INFORMATION
  Report Type: Spontaneous
  Country: MX (occurrence: MX)
  Receive Date: 20200427
  Receipt Date: 20200427
  Transmission Date: 20200714
  Serious: Yes (Other)
  Sender: FDA-Public Use
  Company Number: MX-ASTRAZENECA-2020SE54512

PATIENT
  Age: 24527 Day
  Sex: Male

DRUGS (1)
  1. SYMBICORT [Suspect]
     Active Substance: BUDESONIDE\FORMOTEROL FUMARATE DIHYDRATE
     Dosage: (320 MCG) INHALATION EVERY 12 HOURS, ONE IN THE MORNING AND ONE IN THE AFTERNOON
     Route: 055
     Dates: start: 20190708

REACTIONS (3)
  - Device issue [Unknown]
  - Drug ineffective [Recovering/Resolving]
  - Respiratory distress [Unknown]

NARRATIVE: CASE EVENT DATE: 20200413
